FAERS Safety Report 23608473 (Version 1)
Quarter: 2024Q1

REPORT INFORMATION
  Report Type: Spontaneous
  Country: US (occurrence: US)
  Receive Date: 20240307
  Receipt Date: 20240307
  Transmission Date: 20240409
  Serious: No
  Sender: FDA-Public Use
  Company Number: US-HALEON-USCH2024012362

PATIENT
  Age: 65 Year

DRUGS (2)
  1. VOLTAREN [Suspect]
     Active Substance: DICLOFENAC SODIUM
     Indication: Arthralgia
     Dosage: UNK (CAPSULE) (JOINT COMFORT AND MOVEMENT)
     Route: 065
  2. VOLTAREN [Suspect]
     Active Substance: DICLOFENAC SODIUM
     Indication: Arthralgia
     Dosage: UNK (ARTHRITIS PAIN)
     Route: 065

REACTIONS (1)
  - Drug ineffective [Unknown]
